FAERS Safety Report 23861553 (Version 5)
Quarter: 2024Q4

REPORT INFORMATION
  Report Type: Report from Study
  Country: US (occurrence: US)
  Receive Date: 20240516
  Receipt Date: 20241022
  Transmission Date: 20250114
  Serious: Yes (Other)
  Sender: UCB
  Company Number: US-UCBSA-2024022965

PATIENT
  Age: 16 Year
  Sex: Male
  Weight: 51 kg

DRUGS (1)
  1. FINTEPLA [Suspect]
     Active Substance: FENFLURAMINE
     Indication: Lennox-Gastaut syndrome
     Dosage: 4 MILLILITER, 2X/DAY (BID) (17.6 MG/DAY)
     Route: 048
     Dates: start: 20220921

REACTIONS (1)
  - Tricuspid valve incompetence [Not Recovered/Not Resolved]

NARRATIVE: CASE EVENT DATE: 20240501
